FAERS Safety Report 11597552 (Version 1)
Quarter: 2015Q4

REPORT INFORMATION
  Report Type: Report from Study
  Country: US (occurrence: US)
  Receive Date: 20151006
  Receipt Date: 20151006
  Transmission Date: 20160304
  Serious: No
  Sender: FDA-Public Use
  Company Number: US-AMGEN-USASL2014079301

PATIENT
  Age: 60 Year
  Sex: Female

DRUGS (2)
  1. VECTIBIX [Suspect]
     Active Substance: PANITUMUMAB
     Indication: RECTOSIGMOID CANCER
     Dosage: 6 MG/KG, EVERY TWO WEEKS
     Route: 065
  2. VECTIBIX [Suspect]
     Active Substance: PANITUMUMAB
     Indication: COLON CANCER

REACTIONS (2)
  - Hypomagnesaemia [Unknown]
  - Hypertension [Unknown]
